FAERS Safety Report 24699176 (Version 1)
Quarter: 2024Q4

REPORT INFORMATION
  Report Type: Spontaneous
  Country: US (occurrence: US)
  Receive Date: 20241205
  Receipt Date: 20241205
  Transmission Date: 20250115
  Serious: No
  Sender: APOTEX
  Company Number: US-APOTEX-2024AP018503

PATIENT
  Age: 64 Year
  Sex: Female

DRUGS (2)
  1. TENOFOVIR [Interacting]
     Active Substance: TENOFOVIR
     Indication: Product used for unknown indication
     Dosage: UNK
     Route: 065
  2. DIDANOSINE [Interacting]
     Active Substance: DIDANOSINE
     Indication: Antiretroviral therapy
     Dosage: 250 MILLIGRAM, QD
     Route: 065

REACTIONS (2)
  - Drug interaction [Unknown]
  - Drug level increased [Unknown]
